FAERS Safety Report 4943184-9 (Version None)
Quarter: 2006Q1

REPORT INFORMATION
  Report Type: 
  Country: None (occurrence: None)
  Receive Date: 20060314
  Receipt Date: 20060227
  Transmission Date: 20060701
  Serious: Yes (Hospitalization)
  Sender: FDA-Public Use
  Company Number: HQWYE050928FEB06

PATIENT
  Sex: Female

DRUGS (4)
  1. ENBREL [Suspect]
     Indication: RHEUMATOID ARTHRITIS
     Route: 058
     Dates: start: 20051018, end: 20060214
  2. PREDONINE [Concomitant]
     Route: 048
     Dates: start: 20060203
  3. VOLTAREN [Concomitant]
     Route: 054
     Dates: start: 20050203
  4. METHOTREXATE [Concomitant]
     Route: 048
     Dates: start: 20050203

REACTIONS (4)
  - ATLANTOAXIAL INSTABILITY [None]
  - HYPOAESTHESIA [None]
  - SPINAL CORD COMPRESSION [None]
  - SPONDYLOLISTHESIS [None]
